FAERS Safety Report 5985179-2 (Version None)
Quarter: 2008Q4

REPORT INFORMATION
  Report Type: 
  Country: None (occurrence: None)
  Receive Date: 20081203
  Receipt Date: 20081120
  Transmission Date: 20090506
  Serious: Yes (Hospitalization)
  Sender: FDA-Public Use
  Company Number: 232099K08USA

PATIENT
  Age: 57 Year
  Sex: Female
  Weight: 49 kg

DRUGS (5)
  1. REBIF [Suspect]
     Indication: MULTIPLE SCLEROSIS
     Dosage: 44 MCG, 3 IN 1 WEEKS, SUBCUTANEOUS
     Route: 057
     Dates: start: 20070228, end: 20081001
  2. SYNTHROID [Concomitant]
  3. BACLOFEN [Concomitant]
  4. DEPAKOTE [Concomitant]
  5. MAXZIDE [Concomitant]

REACTIONS (1)
  - PNEUMONIA [None]
